FAERS Safety Report 6826827-4 (Version None)
Quarter: 2010Q3

REPORT INFORMATION
  Report Type: 
  Country: None (occurrence: None)
  Receive Date: 20100709
  Receipt Date: 20100702
  Transmission Date: 20110219
  Serious: Yes (Other)
  Sender: FDA-Public Use
  Company Number: JP-ROCHE-708376

PATIENT
  Sex: Male
  Weight: 9 kg

DRUGS (5)
  1. ROCEPHIN [Suspect]
     Dosage: ROUTE: INTRAVENOUS (NOT OTHERWISE SPECIFIED)
     Route: 042
     Dates: start: 20100524, end: 20100527
  2. ASVERIN [Concomitant]
     Route: 048
     Dates: start: 20100520
  3. PERIACTIN [Concomitant]
     Route: 048
     Dates: start: 20100520
  4. MUCODYNE [Concomitant]
     Route: 048
     Dates: start: 20100520
  5. HOKUNALIN [Concomitant]
     Route: 062
     Dates: start: 20100520

REACTIONS (1)
  - HEPATITIS [None]
